FAERS Safety Report 5407840-0 (Version None)
Quarter: 2007Q3

REPORT INFORMATION
  Report Type: 
  Country: None (occurrence: None)
  Receive Date: 20070803
  Receipt Date: 20070724
  Transmission Date: 20080115
  Serious: Yes (Disabling, Other)
  Sender: FDA-Public Use
  Company Number: 163-20785-07061047

PATIENT
  Age: 55 Year
  Sex: Male

DRUGS (6)
  1. THALOMID [Suspect]
     Indication: MULTIPLE MYELOMA
     Dosage: 200 MG, 1 IN 1 D, ORAL
     Route: 048
     Dates: start: 20050801, end: 20070201
  2. DECADRON [Suspect]
     Indication: MULTIPLE MYELOMA
     Dosage: PULSE, UNKNOWN
     Dates: start: 20050801, end: 20070201
  3. ZOCOR [Concomitant]
  4. ZYPREXA [Concomitant]
  5. LITHIUM CARBONATE [Concomitant]
  6. CALCIUM WITH D (CALCITE D) [Concomitant]

REACTIONS (4)
  - AMPUTATION [None]
  - CELLULITIS [None]
  - OSTEOMYELITIS [None]
  - ULCER [None]
